FAERS Safety Report 9680474 (Version 3)
Quarter: 2013Q4

REPORT INFORMATION
  Report Type: Spontaneous
  Country: US (occurrence: US)
  Receive Date: 20131111
  Receipt Date: 20131227
  Transmission Date: 20140711
  Serious: No
  Sender: FDA-Public Use
  Company Number: US-PFIZER INC-2013318189

PATIENT
  Age: 52 Year
  Sex: Female

DRUGS (6)
  1. ENBREL [Suspect]
     Indication: RHEUMATOID ARTHRITIS
     Dosage: 50 MG, WEEKLY
     Route: 058
     Dates: start: 20131001
  2. METHOTREXATE SODIUM [Suspect]
     Dosage: 20 MG, WEEKLY
  3. METHOTREXATE SODIUM [Suspect]
     Dosage: 15 MG, WEEKLY
  4. FOLIC ACID [Concomitant]
     Dosage: UNK
  5. VITAMIN D3 [Concomitant]
     Dosage: 1000 UNK, UNK
  6. MELOXICAM [Concomitant]
     Dosage: 7.5 MG, UNK

REACTIONS (11)
  - Laceration [Unknown]
  - Fatigue [Unknown]
  - Disturbance in attention [Not Recovered/Not Resolved]
  - Memory impairment [Not Recovered/Not Resolved]
  - Hypersomnia [Not Recovered/Not Resolved]
  - Anxiety [Not Recovered/Not Resolved]
  - Oedema mouth [Recovered/Resolved]
  - Stomatitis [Recovered/Resolved]
  - Skin exfoliation [Recovered/Resolved]
  - Gingival inflammation [Recovered/Resolved]
  - Feeling abnormal [Unknown]
